FAERS Safety Report 7946228-5 (Version None)
Quarter: 2011Q4

REPORT INFORMATION
  Report Type: 
  Country: None (occurrence: None)
  Receive Date: 20111125
  Receipt Date: 20111117
  Transmission Date: 20120403
  Serious: Yes (Other)
  Sender: FDA-Public Use
  Company Number: INT_00042_2011

PATIENT
  Age: 15 Year
  Sex: Female

DRUGS (1)
  1. CEFTAZIDIME [Suspect]
     Indication: INFECTIOUS PERITONITIS
     Dosage: (DF INTRAVENOUS (NOT OTHERWISE SPECIFIED))
     Route: 042

REACTIONS (8)
  - HEADACHE [None]
  - CONFUSIONAL STATE [None]
  - MYOCLONUS [None]
  - VOMITING [None]
  - INFECTIOUS PERITONITIS [None]
  - RENAL FAILURE [None]
  - STATUS EPILEPTICUS [None]
  - ALTERED STATE OF CONSCIOUSNESS [None]
